FAERS Safety Report 8840107 (Version 1)
Quarter: 2012Q4

REPORT INFORMATION
  Report Type: 
  Country: ES (occurrence: ES)
  Receive Date: 20121015
  Receipt Date: 20121015
  Transmission Date: 20130627
  Serious: Yes (Hospitalization)
  Sender: FDA-Public Use
  Company Number: ES-ROCHE-1143407

PATIENT
  Age: 63 Year
  Sex: Female

DRUGS (2)
  1. HERCEPTIN [Suspect]
     Indication: BREAST CANCER
     Dosage: date last dose prior to the SAE ; 04/jul/2012
     Route: 042
  2. DOCETAXEL [Suspect]
     Indication: BREAST CANCER
     Dosage: date of the ast dose prior to the SAE :04/jul/2012
     Route: 042

REACTIONS (3)
  - Febrile neutropenia [Recovered/Resolved]
  - Pain of skin [Unknown]
  - Skin injury [Unknown]
